FAERS Safety Report 8866030 (Version 1)
Quarter: 2012Q4

REPORT INFORMATION
  Report Type: Report from Study
  Country: US (occurrence: US)
  Receive Date: 20121025
  Receipt Date: 20121025
  Transmission Date: 20130627
  Serious: No
  Sender: FDA-Public Use
  Company Number: US-ABBOTT-11P-163-0881227-00

PATIENT
  Sex: Female
  Weight: 74.91 kg

DRUGS (3)
  1. LUPRON DEPOT 3.75 MG [Suspect]
     Indication: ENDOMETRIOSIS
     Route: 030
     Dates: end: 2010
  2. LUPRON DEPOT 3.75 MG [Suspect]
     Route: 030
  3. PLAN B [Concomitant]
     Indication: POST COITAL CONTRACEPTION
     Dates: start: 201111, end: 201111

REACTIONS (2)
  - Uterine spasm [Recovered/Resolved]
  - Vaginal haemorrhage [Not Recovered/Not Resolved]
